FAERS Safety Report 5276302-6 (Version None)
Quarter: 2007Q1

REPORT INFORMATION
  Report Type: 
  Country: None (occurrence: None)
  Receive Date: 20070326
  Receipt Date: 20070314
  Transmission Date: 20070707
  Serious: Yes (Death)
  Sender: FDA-Public Use
  Company Number: EG-PFIZER INC-2007019976

PATIENT
  Age: 47 Year
  Sex: Male

DRUGS (5)
  1. VORICONAZOLE [Suspect]
     Indication: SYSTEMIC CANDIDA
     Route: 042
  2. VORICONAZOLE [Suspect]
     Route: 042
  3. VORICONAZOLE [Suspect]
     Route: 048
  4. AZITHROMYCIN [Concomitant]
     Indication: SARCOIDOSIS
     Dosage: DAILY DOSE:500MG-FREQ:ONCE DAILY
     Route: 042
  5. ROCEPHIN [Concomitant]
     Indication: SARCOIDOSIS
     Dosage: DAILY DOSE:2GRAM-FREQ:ONCE DAILY
     Route: 042

REACTIONS (2)
  - PNEUMONIA FUNGAL [None]
  - SARCOIDOSIS [None]
